FAERS Safety Report 18227171 (Version 4)
Quarter: 2020Q4

REPORT INFORMATION
  Report Type: Spontaneous
  Country: NL (occurrence: NL)
  Receive Date: 20200903
  Receipt Date: 20201209
  Transmission Date: 20210113
  Serious: Yes (Disabling)
  Sender: FDA-Public Use
  Company Number: NL-TEVA-2020-NL-1820600

PATIENT
  Age: 85 Year
  Sex: Male

DRUGS (1)
  1. OCTREOTIDE DEPOT TEVA 20 MG, POEDER EN OPLOSMIDDEL VOOR SUSPENSIE VOOR [Suspect]
     Active Substance: OCTREOTIDE ACETATE
     Dosage: 30MG/28DAY
     Route: 030
     Dates: start: 20200424, end: 20200724

REACTIONS (4)
  - Injection site induration [Recovered/Resolved]
  - Gait inability [Recovered/Resolved]
  - Pain [Recovered/Resolved]
  - Injection site pain [Recovered/Resolved]

NARRATIVE: CASE EVENT DATE: 20200424
